FAERS Safety Report 25624113 (Version 1)
Quarter: 2025Q3

REPORT INFORMATION
  Report Type: Spontaneous
  Country: EU (occurrence: EU)
  Receive Date: 20250730
  Receipt Date: 20250730
  Transmission Date: 20251020
  Serious: Yes (Other)
  Sender: MYLAN
  Company Number: EU-MYLANLABS-2025M1063733

PATIENT
  Sex: Female

DRUGS (3)
  1. ZOLOFT [Suspect]
     Active Substance: SERTRALINE HYDROCHLORIDE
     Indication: Product used for unknown indication
     Dosage: 2 DOSAGE FORM, QD, (START DATE: 20-JUL-2025 )
  2. BROMAZEPAM [Concomitant]
     Active Substance: BROMAZEPAM
  3. TRIMEPRAZINE [Concomitant]
     Active Substance: TRIMEPRAZINE

REACTIONS (10)
  - Neuropathy peripheral [Unknown]
  - Vision blurred [Unknown]
  - Amnesia [Unknown]
  - Suffocation feeling [Unknown]
  - Dizziness [Unknown]
  - Paraesthesia [Unknown]
  - Gait disturbance [Unknown]
  - Depression [Unknown]
  - Hypersensitivity [Unknown]
  - Inappropriate schedule of product administration [Unknown]

NARRATIVE: CASE EVENT DATE: 20250701
